FAERS Safety Report 6885139-3 (Version None)
Quarter: 2010Q3

REPORT INFORMATION
  Report Type: 
  Country: None (occurrence: None)
  Receive Date: 20100729
  Receipt Date: 20071221
  Transmission Date: 20110219
  Serious: No
  Sender: FDA-Public Use
  Company Number: US-PFIZER INC-2007090525

PATIENT
  Sex: Female
  Weight: 68.95 kg

DRUGS (3)
  1. CELEBREX [Suspect]
     Indication: OSTEOARTHRITIS
     Route: 048
     Dates: start: 20070801
  2. LEVOTHYROXINE SODIUM [Concomitant]
  3. MULTI-VITAMINS [Concomitant]

REACTIONS (1)
  - RASH [None]
